FAERS Safety Report 6146690-7 (Version None)
Quarter: 2009Q2

REPORT INFORMATION
  Report Type: 
  Country: None (occurrence: None)
  Receive Date: 20090407
  Receipt Date: 20090331
  Transmission Date: 20091009
  Serious: Yes (Death)
  Sender: FDA-Public Use
  Company Number: BE-ASTRAZENECA-2009AC00936

PATIENT
  Age: 40 Year
  Sex: Female

DRUGS (2)
  1. MERONEM [Suspect]
     Indication: PNEUMONIA
     Dosage: 3X1
     Dates: start: 20090301
  2. DIFLUCAN [Suspect]
     Indication: PNEUMONIA
     Dates: start: 20090301

REACTIONS (1)
  - SEPTIC EMBOLUS [None]
